FAERS Safety Report 6303662-7 (Version None)
Quarter: 2009Q3

REPORT INFORMATION
  Report Type: 
  Country: None (occurrence: None)
  Receive Date: 20090807
  Receipt Date: 20090807
  Transmission Date: 20100115
  Serious: Yes (Hospitalization)
  Sender: FDA-Public Use
  Company Number: None

PATIENT
  Age: 63 Year
  Sex: Male
  Weight: 87 kg

DRUGS (1)
  1. PHENYTOIN 250 MG/5 ML BAXTER HEALTHCARE CORP. [Suspect]
     Indication: CONVULSION
     Dosage: 1000 MG IV X1 DOSE ONE DOSE IV BOLUS
     Route: 040
     Dates: start: 20090725, end: 20090725

REACTIONS (4)
  - AGGRESSION [None]
  - AGITATION [None]
  - DOCUMENTED HYPERSENSITIVITY TO ADMINISTERED DRUG [None]
  - STEVENS-JOHNSON SYNDROME [None]
